FAERS Safety Report 6464505-4 (Version None)
Quarter: 2009Q4

REPORT INFORMATION
  Report Type: 
  Country: None (occurrence: None)
  Receive Date: 20091201
  Receipt Date: 20091119
  Transmission Date: 20100525
  Serious: Yes (Other)
  Sender: FDA-Public Use
  Company Number: IE-PFIZER INC-2009300055

PATIENT
  Age: 79 Year
  Sex: Male

DRUGS (10)
  1. SILDENAFIL CITRATE [Suspect]
     Indication: PULMONARY HYPERTENSION
     Dosage: 10 MG, 3X/DAY
  2. SILDENAFIL CITRATE [Suspect]
     Dosage: 20 MG, 3X/DAY
  3. OMEPRAZOLE [Concomitant]
  4. DISTAMINE [Concomitant]
  5. L-THYROXIN [Concomitant]
  6. BISOPROLOL [Concomitant]
  7. RAMIPRIL [Concomitant]
  8. BOSENTAN [Concomitant]
     Dosage: 125 MG, 2X/DAY
  9. AZATHIOPRINE [Concomitant]
  10. AMBRISENTAN [Concomitant]

REACTIONS (2)
  - SCOTOMA [None]
  - VISUAL ACUITY REDUCED [None]
